FAERS Safety Report 15292078 (Version 1)
Quarter: 2018Q3

REPORT INFORMATION
  Report Type: Spontaneous
  Country: FR (occurrence: FR)
  Receive Date: 20180818
  Receipt Date: 20180818
  Transmission Date: 20181010
  Serious: Yes (Hospitalization)
  Sender: FDA-Public Use
  Company Number: FR-CONCORDIA PHARMACEUTICALS INC.-GSH201808-002853

PATIENT
  Age: 62 Year
  Sex: Male

DRUGS (5)
  1. ALFUZOSIN [Suspect]
     Active Substance: ALFUZOSIN
     Route: 048
     Dates: start: 20081115
  2. PLACEBO [Suspect]
     Active Substance: UNSPECIFIED INGREDIENT
     Indication: RENAL CANCER
     Route: 048
     Dates: start: 20090424
  3. COLCHICINE. [Concomitant]
     Active Substance: COLCHICINE
     Dates: start: 20081115
  4. ZOLPIDEM [Concomitant]
     Active Substance: ZOLPIDEM\ZOLPIDEM TARTRATE
     Dates: start: 20081115
  5. AVODART [Concomitant]
     Active Substance: DUTASTERIDE
     Dates: start: 20081115

REACTIONS (1)
  - Fall [Recovered/Resolved]

NARRATIVE: CASE EVENT DATE: 20090922
